FAERS Safety Report 14267395 (Version 2)
Quarter: 2017Q4

REPORT INFORMATION
  Report Type: Spontaneous
  Country: US (occurrence: US)
  Receive Date: 20171211
  Receipt Date: 20171227
  Transmission Date: 20180321
  Serious: Yes (Other)
  Sender: FDA-Public Use
  Company Number: US-TORRENT-00005309

PATIENT
  Age: 52 Year
  Sex: Female

DRUGS (1)
  1. SERTRALINE HCL [Suspect]
     Active Substance: SERTRALINE HYDROCHLORIDE
     Indication: OBSESSIVE THOUGHTS

REACTIONS (4)
  - Anosmia [Recovered/Resolved]
  - Cranial nerve disorder [Recovered/Resolved]
  - Hyposmia [Recovered/Resolved]
  - Hypogeusia [Unknown]
